FAERS Safety Report 7008279-7 (Version None)
Quarter: 2010Q3

REPORT INFORMATION
  Report Type: 
  Country: None (occurrence: None)
  Receive Date: 20100922
  Receipt Date: 20100916
  Transmission Date: 20110219
  Serious: Yes (Hospitalization)
  Sender: FDA-Public Use
  Company Number: A0796500A

PATIENT
  Age: 43 Year
  Sex: Male
  Weight: 127.3 kg

DRUGS (9)
  1. AVANDIA [Suspect]
     Route: 048
     Dates: start: 20000101
  2. ZOCOR [Concomitant]
  3. DILANTIN [Concomitant]
  4. LOTENSIN [Concomitant]
  5. GLUCOPHAGE [Concomitant]
  6. GLIPIZIDE [Concomitant]
  7. FAMOTIDINE [Concomitant]
  8. INSULIN [Concomitant]
  9. GEMFIBROZIL [Concomitant]

REACTIONS (3)
  - ARRHYTHMIA [None]
  - DYSPNOEA [None]
  - MYOCARDIAL INFARCTION [None]
